FAERS Safety Report 14502304 (Version 1)
Quarter: 2018Q1

REPORT INFORMATION
  Report Type: Spontaneous
  Country: RU (occurrence: RU)
  Receive Date: 20180208
  Receipt Date: 20180208
  Transmission Date: 20180509
  Serious: Yes (Hospitalization, Other)
  Sender: FDA-Public Use
  Company Number: RU-ASTRAZENECA-2018SE14215

PATIENT
  Age: 50 Year
  Sex: Female
  Weight: 75 kg

DRUGS (10)
  1. CARDIOMAGNYL [Concomitant]
     Active Substance: ASPIRIN\MAGNESIUM HYDROXIDE
  2. RIMECOR [Concomitant]
  3. CARVEDILOL. [Concomitant]
     Active Substance: CARVEDILOL
  4. VEROSPIRON [Concomitant]
     Active Substance: SPIRONOLACTONE
  5. METFORMIN [Concomitant]
     Active Substance: METFORMIN HYDROCHLORIDE
  6. BRILINTA [Suspect]
     Active Substance: TICAGRELOR
     Indication: MYOCARDIAL INFARCTION
     Route: 048
     Dates: start: 20170930
  7. LIPRIMAR [Concomitant]
     Active Substance: ATORVASTATIN CALCIUM
  8. PRESTARIUM [Concomitant]
     Active Substance: PERINDOPRIL
  9. DIUVER [Concomitant]
     Active Substance: TORSEMIDE
  10. IVABRADINE [Concomitant]
     Active Substance: IVABRADINE

REACTIONS (2)
  - Blood glucose increased [Recovered/Resolved]
  - Pulmonary oedema [Recovered/Resolved]

NARRATIVE: CASE EVENT DATE: 20180111
